FAERS Safety Report 18546973 (Version 1)
Quarter: 2020Q4

REPORT INFORMATION
  Report Type: Spontaneous
  Country: US (occurrence: US)
  Receive Date: 20201125
  Receipt Date: 20201125
  Transmission Date: 20210114
  Serious: Yes (Hospitalization)
  Sender: FDA-Public Use
  Company Number: US-ELI_LILLY_AND_COMPANY-US202011008540

PATIENT
  Age: 70 Year
  Sex: Female

DRUGS (5)
  1. INSULIN  LISPRO [Suspect]
     Active Substance: INSULIN LISPRO
     Indication: TYPE 2 DIABETES MELLITUS
     Dosage: 12 U, PRN
     Route: 058
  2. INSULIN  LISPRO [Suspect]
     Active Substance: INSULIN LISPRO
     Dosage: 14 U, DAILY (EACH NIGHT)
     Route: 058
  3. INSULIN  LISPRO [Suspect]
     Active Substance: INSULIN LISPRO
     Dosage: 14 U, DAILY (EACH NIGHT)
     Route: 058
     Dates: start: 202008
  4. INSULIN  LISPRO [Suspect]
     Active Substance: INSULIN LISPRO
     Indication: TYPE 2 DIABETES MELLITUS
     Dosage: 12 U, PRN
     Route: 058
     Dates: start: 202008
  5. METFORMIN [Concomitant]
     Active Substance: METFORMIN HYDROCHLORIDE
     Indication: TYPE 2 DIABETES MELLITUS
     Dosage: 1000 MG, BID
     Route: 065

REACTIONS (6)
  - Infection [Unknown]
  - Blood glucose increased [Unknown]
  - Oncologic complication [Recovered/Resolved]
  - Blood glucose increased [Unknown]
  - Pain [Unknown]
  - Blood glucose increased [Unknown]

NARRATIVE: CASE EVENT DATE: 202008
